FAERS Safety Report 9714550 (Version 1)
Quarter: 2013Q4

REPORT INFORMATION
  Report Type: Spontaneous
  Country: US (occurrence: US)
  Receive Date: 20131126
  Receipt Date: 20131126
  Transmission Date: 20140711
  Serious: No
  Sender: FDA-Public Use
  Company Number: US-GILEAD-2013-0088600

PATIENT
  Sex: Female

DRUGS (4)
  1. LETAIRIS [Suspect]
     Indication: PRODUCT USED FOR UNKNOWN INDICATION
     Dosage: 10 MG, QD
     Route: 048
     Dates: start: 20120924
  2. REMODULIN [Concomitant]
  3. REVATIO [Concomitant]
  4. WARFARIN [Concomitant]

REACTIONS (5)
  - Anxiety [Unknown]
  - Feeling abnormal [Unknown]
  - Insomnia [Unknown]
  - Injection site pain [Unknown]
  - Dyspnoea [Unknown]
